FAERS Safety Report 24932837 (Version 1)
Quarter: 2025Q1

REPORT INFORMATION
  Report Type: Report from Study
  Country: CL (occurrence: CL)
  Receive Date: 20250205
  Receipt Date: 20250205
  Transmission Date: 20250409
  Serious: Yes (Other)
  Sender: ALEXION PHARMACEUTICALS
  Company Number: CL-AstraZeneca-CH-00795148A

PATIENT
  Age: 60 Year

DRUGS (2)
  1. OSIMERTINIB [Suspect]
     Active Substance: OSIMERTINIB
     Indication: Breast cancer metastatic
     Dosage: 300 MILLIGRAM, Q12H
  2. OSIMERTINIB [Suspect]
     Active Substance: OSIMERTINIB
     Indication: HER2 negative breast cancer

REACTIONS (3)
  - Seroma [Unknown]
  - Skin mass [Unknown]
  - Intramammary lymph node [Unknown]
